FAERS Safety Report 24289938 (Version 1)
Quarter: 2024Q3

REPORT INFORMATION
  Report Type: Spontaneous
  Country: US (occurrence: US)
  Receive Date: 20240906
  Receipt Date: 20240906
  Transmission Date: 20241016
  Serious: Yes (Hospitalization)
  Sender: BRISTOL MYERS SQUIBB
  Company Number: US-BRISTOL-MYERS SQUIBB COMPANY-2024-139520

PATIENT
  Age: 68 Year
  Sex: Male

DRUGS (1)
  1. POMALYST [Suspect]
     Active Substance: POMALIDOMIDE
     Indication: Viral infection
     Dosage: TAKE 1 CAPSULE (3 MG) BY MOUTH DAILY ON DAYS 1-21, THEN TAKE 1 WEEK OFF. REPEAT EVERY 28 DAYS.
     Route: 048

REACTIONS (2)
  - Illness [Recovering/Resolving]
  - Pain [Recovering/Resolving]
